FAERS Safety Report 5213202-1 (Version None)
Quarter: 2007Q1

REPORT INFORMATION
  Report Type: 
  Country: None (occurrence: None)
  Receive Date: 20070119
  Receipt Date: 20070112
  Transmission Date: 20070707
  Serious: Yes (Hospitalization)
  Sender: FDA-Public Use
  Company Number: SK-GLAXOSMITHKLINE-B0454348A

PATIENT
  Age: 47 Year
  Sex: Male

DRUGS (2)
  1. AUGMENTIN '125' [Suspect]
     Indication: ACUTE TONSILLITIS
     Route: 048
     Dates: start: 20061215
  2. PANADOL [Concomitant]

REACTIONS (1)
  - TOXIC SKIN ERUPTION [None]
